FAERS Safety Report 12707032 (Version 6)
Quarter: 2016Q4

REPORT INFORMATION
  Report Type: Report from Study
  Country: US (occurrence: US)
  Receive Date: 20160901
  Receipt Date: 20161129
  Transmission Date: 20170207
  Serious: Yes (Hospitalization)
  Sender: FDA-Public Use
  Company Number: PHEH2016US021887

PATIENT
  Age: 55 Year
  Sex: Female
  Weight: 70.3 kg

DRUGS (1)
  1. GILENYA [Suspect]
     Active Substance: FINGOLIMOD HYDROCHLORIDE
     Indication: MULTIPLE SCLEROSIS
     Dosage: 0.5 MG, QD
     Route: 048
     Dates: start: 20130927

REACTIONS (10)
  - Balance disorder [Recovering/Resolving]
  - Muscle spasticity [Recovering/Resolving]
  - Diplopia [Recovering/Resolving]
  - Gait disturbance [Recovering/Resolving]
  - Hypoaesthesia [Recovering/Resolving]
  - Limb discomfort [Recovering/Resolving]
  - Eye movement disorder [Recovering/Resolving]
  - Multiple sclerosis relapse [Recovering/Resolving]
  - Dry mouth [Unknown]
  - Visual impairment [Recovering/Resolving]

NARRATIVE: CASE EVENT DATE: 20160816
